FAERS Safety Report 21403924 (Version 1)
Quarter: 2022Q4

REPORT INFORMATION
  Report Type: Spontaneous
  Country: US (occurrence: US)
  Receive Date: 20221003
  Receipt Date: 20221003
  Transmission Date: 20230112
  Serious: Yes (Other)
  Sender: FDA-Public Use
  Company Number: US-PFIZER INC-202201196447

PATIENT

DRUGS (2)
  1. PAXLOVID [Suspect]
     Active Substance: NIRMATRELVIR\RITONAVIR
     Indication: COVID-19 treatment
     Dosage: 2 DF (MORNING DOSE THE NIRMATRELVIR IS 150 AND THE RITONAVIR IS 100)
  2. BENZONATATE [Concomitant]
     Active Substance: BENZONATATE
     Indication: Cough
     Dosage: 200 MG, 2X/DAY (TWO TIMES A DAY)

REACTIONS (3)
  - Mental impairment [Unknown]
  - Feeling abnormal [Unknown]
  - Speech disorder [Unknown]
